FAERS Safety Report 8199106-3 (Version None)
Quarter: 2012Q1

REPORT INFORMATION
  Report Type: 
  Country: None (occurrence: None)
  Receive Date: 20120309
  Receipt Date: 20120301
  Transmission Date: 20120608
  Serious: Yes (Other)
  Sender: FDA-Public Use
  Company Number: AR-ROCHE-1005201

PATIENT
  Sex: Female

DRUGS (1)
  1. LUCENTIS [Suspect]
     Indication: MACULOPATHY
     Route: 050
     Dates: start: 20110405

REACTIONS (6)
  - MACULOPATHY [None]
  - VISION BLURRED [None]
  - DRUG INEFFECTIVE [None]
  - DISEASE PROGRESSION [None]
  - EYE OEDEMA [None]
  - VISUAL IMPAIRMENT [None]
